FAERS Safety Report 8821534 (Version 2)
Quarter: 2012Q4

REPORT INFORMATION
  Report Type: 
  Country: BR (occurrence: BR)
  Receive Date: 20121002
  Receipt Date: 20121008
  Transmission Date: 20130627
  Serious: Yes (Other)
  Sender: FDA-Public Use
  Company Number: BR-PFIZER INC-2012238900

PATIENT
  Sex: Female

DRUGS (4)
  1. CHAMPIX [Suspect]
     Indication: SMOKING CESSATION THERAPY
     Dosage: UNK
     Route: 048
     Dates: start: 201206, end: 201208
  2. ADALAT RETARD [Concomitant]
     Indication: BLOOD PRESSURE INCREASED
     Dosage: 20 mg, 2x/day
  3. HYDROCHLOROTHIAZIDE [Concomitant]
     Indication: BLOOD PRESSURE INCREASED
     Dosage: 25 mg, 1x/day
  4. LOSARTAN [Concomitant]
     Indication: BLOOD PRESSURE INCREASED
     Dosage: 20 mg, 1x/day

REACTIONS (4)
  - Renal cancer [Unknown]
  - Dependence [Unknown]
  - Feeling of despair [Unknown]
  - Weight increased [Unknown]
